FAERS Safety Report 20853207 (Version 1)
Quarter: 2022Q2

REPORT INFORMATION
  Report Type: Spontaneous
  Country: CN (occurrence: None)
  Receive Date: 20220520
  Receipt Date: 20220520
  Transmission Date: 20220721
  Serious: Yes (Hospitalization)
  Sender: FDA-Public Use
  Company Number: 2022A180207

PATIENT
  Age: 684 Month
  Sex: Female
  Weight: 53 kg

DRUGS (2)
  1. IRESSA [Suspect]
     Active Substance: GEFITINIB
     Indication: Lung neoplasm malignant
     Dosage: ONE TABLET A DAY.
     Route: 048
     Dates: start: 2017, end: 202010
  2. TAGRISSO [Suspect]
     Active Substance: OSIMERTINIB
     Route: 048

REACTIONS (2)
  - Headache [Not Recovered/Not Resolved]
  - Drug resistance [Unknown]

NARRATIVE: CASE EVENT DATE: 20201001
